FAERS Safety Report 8858382 (Version 1)
Quarter: 2012Q4

REPORT INFORMATION
  Report Type: 
  Country: US (occurrence: US)
  Receive Date: 20121024
  Receipt Date: 20121024
  Transmission Date: 20130627
  Serious: No
  Sender: FDA-Public Use
  Company Number: US-AMGEN-USASP2012000930

PATIENT
  Age: 75 Year
  Sex: Female

DRUGS (11)
  1. ENBREL [Suspect]
     Indication: PRODUCT USED FOR UNKNOWN INDICATION
     Dosage: 50 mg, qwk
  2. AUGMENTIN                          /00756801/ [Concomitant]
     Dosage: 500 mg, UNK
  3. NORVASC [Concomitant]
     Dosage: 2.5 mg, UNK
  4. FOLIC ACID [Concomitant]
  5. PRAVASTATIN [Concomitant]
     Dosage: 20 mg, UNK
  6. PLAQUENIL                          /00072602/ [Concomitant]
     Dosage: 200 mg, UNK
  7. ESTRACE [Concomitant]
  8. METHOTREXATE [Concomitant]
     Dosage: 2.5 mg, UNK
  9. PRILOSEC                           /00661201/ [Concomitant]
     Dosage: 10 mg, UNK
  10. ECOTRIN [Concomitant]
     Dosage: 81 mg, UNK
  11. AMITRIPTYLIN [Concomitant]
     Dosage: 100 mg, UNK

REACTIONS (1)
  - Localised infection [Unknown]
